FAERS Safety Report 6588126-8 (Version None)
Quarter: 2010Q1

REPORT INFORMATION
  Report Type: 
  Country: None (occurrence: None)
  Receive Date: 20100217
  Receipt Date: 20100217
  Transmission Date: 20100710
  Serious: Yes (Hospitalization)
  Sender: FDA-Public Use
  Company Number: None

PATIENT
  Sex: Female
  Weight: 85.9 kg

DRUGS (3)
  1. CARBOPLATIN [Suspect]
     Dosage: 1003 MG
  2. TAXOL [Suspect]
     Dosage: 420 MG
  3. WARFARIN [Concomitant]

REACTIONS (1)
  - PULMONARY EMBOLISM [None]
